FAERS Safety Report 9120374 (Version 1)
Quarter: 2013Q1

REPORT INFORMATION
  Report Type: Spontaneous
  Country: US (occurrence: US)
  Receive Date: 20130226
  Receipt Date: 20130226
  Transmission Date: 20140127
  Serious: Yes (Other)
  Sender: FDA-Public Use
  Company Number: CHPA2013US003431

PATIENT
  Age: 75 Year
  Sex: Female

DRUGS (1)
  1. EXCEDRIN EXTRA STRENGTH [Suspect]
     Indication: ARTHRITIS
     Dosage: RECOMMENDED DOSAGE, UNK
     Route: 048

REACTIONS (2)
  - Asthma [Not Recovered/Not Resolved]
  - Abdominal pain upper [Recovered/Resolved]
